FAERS Safety Report 21891747 (Version 1)
Quarter: 2023Q1

REPORT INFORMATION
  Report Type: Spontaneous
  Country: IN (occurrence: IN)
  Receive Date: 20230120
  Receipt Date: 20230120
  Transmission Date: 20230418
  Serious: Yes (Hospitalization)
  Sender: FDA-Public Use
  Company Number: IN-BAYER-2023P002831

PATIENT
  Age: 25 Year
  Sex: Male

DRUGS (2)
  1. NAPROXEN SODIUM [Suspect]
     Active Substance: NAPROXEN SODIUM
     Indication: Arthralgia
  2. INDOMETHACIN SODIUM [Concomitant]
     Active Substance: INDOMETHACIN SODIUM

REACTIONS (1)
  - Psoriatic arthropathy [None]
